FAERS Safety Report 9094099 (Version 1)
Quarter: 2013Q1

REPORT INFORMATION
  Report Type: Spontaneous
  Country: AU (occurrence: AU)
  Receive Date: 20130218
  Receipt Date: 20130218
  Transmission Date: 20140127
  Serious: Yes (Hospitalization)
  Sender: FDA-Public Use
  Company Number: AU-ASTRAZENECA-2013SE09507

PATIENT
  Age: 72 Year
  Sex: Female

DRUGS (6)
  1. ROPIVACAINE [Suspect]
     Dosage: 8 ML
     Route: 053
  2. PROPOFOL [Concomitant]
     Indication: SEDATIVE THERAPY
  3. PHENYLEPHRINE [Concomitant]
  4. CYCLOPENTOLATE [Concomitant]
  5. TROPICAMIDE [Concomitant]
  6. AMETHOCAINE [Concomitant]

REACTIONS (2)
  - IIIrd nerve paralysis [Recovered/Resolved]
  - Blindness transient [Recovered/Resolved]
